FAERS Safety Report 25847098 (Version 1)
Quarter: 2025Q3

REPORT INFORMATION
  Report Type: Spontaneous
  Country: US (occurrence: US)
  Receive Date: 20250925
  Receipt Date: 20250925
  Transmission Date: 20251020
  Serious: No
  Sender: SUNOVION
  Company Number: US-SMPA-2025SPA012035

PATIENT
  Age: 80 Year
  Sex: Female

DRUGS (1)
  1. GEMTESA [Suspect]
     Active Substance: VIBEGRON
     Indication: Hypertonic bladder
     Route: 048

REACTIONS (2)
  - Skin exfoliation [Unknown]
  - Dry mouth [Unknown]

NARRATIVE: CASE EVENT DATE: 20250801
